FAERS Safety Report 6324052-7 (Version None)
Quarter: 2009Q3

REPORT INFORMATION
  Report Type: 
  Country: None (occurrence: None)
  Receive Date: 20090824
  Receipt Date: 20090527
  Transmission Date: 20100115
  Serious: No
  Sender: FDA-Public Use
  Company Number: US-ABBOTT-09P-163-0576134-00

PATIENT
  Sex: Male
  Weight: 102.15 kg

DRUGS (15)
  1. NIASPAN [Suspect]
     Indication: BLOOD TRIGLYCERIDES INCREASED
     Dates: start: 20060101
  2. NIASPAN [Suspect]
     Dates: start: 20060101
  3. ASPIRIN [Concomitant]
     Indication: DRUG USE FOR UNKNOWN INDICATION
  4. ADVICOR [Concomitant]
     Indication: DRUG USE FOR UNKNOWN INDICATION
     Dates: start: 20070101, end: 20090401
  5. TRICOR [Concomitant]
     Indication: DRUG USE FOR UNKNOWN INDICATION
     Dates: start: 20070101, end: 20090401
  6. TRILIPEX [Concomitant]
     Indication: DRUG USE FOR UNKNOWN INDICATION
     Dates: start: 20090401
  7. SIMCOR [Concomitant]
     Indication: DRUG USE FOR UNKNOWN INDICATION
     Dosage: 500MG/20MG
     Dates: start: 20090401
  8. COUMADIN [Concomitant]
     Indication: DRUG USE FOR UNKNOWN INDICATION
  9. DIGOXIN [Concomitant]
     Indication: DRUG USE FOR UNKNOWN INDICATION
  10. RANITIDINE [Concomitant]
     Indication: DRUG USE FOR UNKNOWN INDICATION
  11. TOPROL-XL [Concomitant]
     Indication: DRUG USE FOR UNKNOWN INDICATION
  12. BENICAR [Concomitant]
     Indication: DRUG USE FOR UNKNOWN INDICATION
  13. FISH OIL [Concomitant]
     Indication: DRUG USE FOR UNKNOWN INDICATION
  14. ACTOPLUS MET [Concomitant]
     Indication: DRUG USE FOR UNKNOWN INDICATION
  15. VIAGRA [Concomitant]
     Indication: DRUG USE FOR UNKNOWN INDICATION

REACTIONS (1)
  - FLUSHING [None]
